FAERS Safety Report 16576952 (Version 1)
Quarter: 2019Q3

REPORT INFORMATION
  Report Type: Spontaneous
  Country: US (occurrence: US)
  Receive Date: 20190716
  Receipt Date: 20190716
  Transmission Date: 20191004
  Serious: No
  Sender: FDA-Public Use
  Company Number: US-GLENMARK PHARMACEUTICALS-2019GMK040090

PATIENT

DRUGS (1)
  1. MOMETASONE FUROATE CREAM USP, 0.1% [Suspect]
     Active Substance: MOMETASONE FUROATE
     Indication: DRUG HYPERSENSITIVITY
     Dosage: UNK
     Route: 061
     Dates: start: 20190302

REACTIONS (2)
  - Application site dryness [Unknown]
  - Application site pruritus [Unknown]

NARRATIVE: CASE EVENT DATE: 201903
